FAERS Safety Report 7456174-1 (Version None)
Quarter: 2011Q2

REPORT INFORMATION
  Report Type: 
  Country: None (occurrence: None)
  Receive Date: 20110503
  Receipt Date: 20110428
  Transmission Date: 20111010
  Serious: Yes (Death, Hospitalization, Other)
  Sender: FDA-Public Use
  Company Number: US-ELI_LILLY_AND_COMPANY-US201104008043

PATIENT
  Age: 64 Year
  Sex: Male

DRUGS (2)
  1. INSULIN [Concomitant]
     Dosage: UNK, UNKNOWN
     Route: 065
  2. EFFIENT [Suspect]
     Indication: ACUTE CORONARY SYNDROME
     Dosage: 60MG, LOADING DOSE
     Route: 048
     Dates: start: 20110427

REACTIONS (3)
  - POST PROCEDURAL COMPLICATION [None]
  - HAEMORRHAGE INTRACRANIAL [None]
  - BRAIN DEATH [None]
